FAERS Safety Report 15706672 (Version 2)
Quarter: 2018Q4

REPORT INFORMATION
  Report Type: Report from Study
  Country: RO (occurrence: RO)
  Receive Date: 20181210
  Receipt Date: 20181211
  Transmission Date: 20190205
  Serious: Yes (Other)
  Sender: FDA-Public Use
  Company Number: RO-B.I. PHARMACEUTICALS,INC./RIDGEFIELD-2018-BI-056175

PATIENT
  Age: 35 Year
  Sex: Male

DRUGS (6)
  1. TIMONIL [Concomitant]
     Active Substance: CARBAMAZEPINE
     Indication: PRODUCT USED FOR UNKNOWN INDICATION
     Route: 065
     Dates: start: 201307
  2. ENCEPHABOL [Concomitant]
     Active Substance: PYRITINOL HYDROCHLORIDE
     Indication: PRODUCT USED FOR UNKNOWN INDICATION
     Route: 065
     Dates: start: 201307
  3. PRADAXA [Suspect]
     Active Substance: DABIGATRAN ETEXILATE MESYLATE
     Indication: INTRACRANIAL VENOUS SINUS THROMBOSIS
     Route: 065
     Dates: start: 201307, end: 201608
  4. KETONAL [Suspect]
     Active Substance: KETOPROFEN
     Indication: PRODUCT USED FOR UNKNOWN INDICATION
     Route: 065
  5. TIMONIL [Concomitant]
     Active Substance: CARBAMAZEPINE
     Route: 065
     Dates: start: 201511
  6. TAROSIN [Concomitant]
     Indication: PRODUCT USED FOR UNKNOWN INDICATION
     Route: 065
     Dates: start: 201307

REACTIONS (5)
  - Dysgraphia [Unknown]
  - Drug interaction [Recovered/Resolved]
  - Dysmetria [Unknown]
  - Gastrointestinal haemorrhage [Recovered/Resolved]
  - Alopecia [Recovered/Resolved]

NARRATIVE: CASE EVENT DATE: 201511
